FAERS Safety Report 5645759-0 (Version None)
Quarter: 2008Q1

REPORT INFORMATION
  Report Type: 
  Country: None (occurrence: None)
  Receive Date: 20080131
  Receipt Date: 20071213
  Transmission Date: 20080703
  Serious: No
  Sender: FDA-Public Use
  Company Number: 163-21880-07120822

PATIENT
  Age: 77 Year
  Sex: Female

DRUGS (3)
  1. REVLIMID [Suspect]
     Indication: MULTIPLE MYELOMA
     Dosage: 10 MG, DAILY X 21 DAYS, ORAL ;10 MG, DAILY X 21 DAYS, ORAL
     Route: 048
     Dates: start: 20071119, end: 20071209
  2. REVLIMID [Suspect]
     Indication: MULTIPLE MYELOMA
     Dosage: 10 MG, DAILY X 21 DAYS, ORAL ;10 MG, DAILY X 21 DAYS, ORAL
     Route: 048
     Dates: start: 20071213
  3. LEVAQUIN [Suspect]
     Indication: DRUG USE FOR UNKNOWN INDICATION
     Dates: start: 20071209, end: 20071201

REACTIONS (4)
  - NASOPHARYNGITIS [None]
  - PRURITUS [None]
  - RASH [None]
  - STOMACH DISCOMFORT [None]
